FAERS Safety Report 12619925 (Version 1)
Quarter: 2016Q3

REPORT INFORMATION
  Report Type: Spontaneous
  Country: US (occurrence: US)
  Receive Date: 20160803
  Receipt Date: 20160803
  Transmission Date: 20161109
  Serious: Yes (Hospitalization, Other)
  Sender: FDA-Public Use
  Company Number: US-SAOL THERAPEUTICS-2016SAO00311

PATIENT
  Sex: Female

DRUGS (6)
  1. DILAUDID [Suspect]
     Active Substance: HYDROMORPHONE HYDROCHLORIDE
     Route: 037
  2. COMPOUNDED BACLOFEN [Suspect]
     Active Substance: BACLOFEN
     Indication: PAIN
     Route: 037
  3. HYDROMORPHONE [Suspect]
     Active Substance: HYDROMORPHONE
     Route: 037
  4. COMPOUNDED BACLOFEN [Suspect]
     Active Substance: BACLOFEN
     Indication: POST HERPETIC NEURALGIA
  5. OTHER [Suspect]
     Active Substance: UNSPECIFIED INGREDIENT
     Route: 037
  6. CLONIDINE. [Suspect]
     Active Substance: CLONIDINE
     Route: 037

REACTIONS (6)
  - Kidney infection [Unknown]
  - Sepsis [Unknown]
  - Therapy cessation [Recovered/Resolved]
  - Off label use [Unknown]
  - Hospitalisation [Unknown]
  - Device alarm issue [Unknown]

NARRATIVE: CASE EVENT DATE: 201508
